FAERS Safety Report 7444592-7 (Version None)
Quarter: 2011Q2

REPORT INFORMATION
  Report Type: 
  Country: None (occurrence: None)
  Receive Date: 20110426
  Receipt Date: 20110426
  Transmission Date: 20111010
  Serious: No
  Sender: FDA-Public Use
  Company Number: None

PATIENT
  Age: 74 Year
  Sex: Male
  Weight: 80.7 kg

DRUGS (1)
  1. MULTAQ [Suspect]
     Indication: ATRIAL FIBRILLATION
     Dosage: 400 MG BID PO
     Route: 048
     Dates: start: 20100115, end: 20100905

REACTIONS (11)
  - VISUAL ACUITY REDUCED [None]
  - PAPILLOEDEMA [None]
  - PUPILLARY REFLEX IMPAIRED [None]
  - OPTIC ATROPHY [None]
  - VISUAL EVOKED POTENTIALS ABNORMAL [None]
  - VISUAL FIELD TESTS ABNORMAL [None]
  - EYE PAIN [None]
  - SCOTOMA [None]
  - PHOTOPSIA [None]
  - CHROMATOPSIA [None]
  - VITREOUS FLOATERS [None]
